FAERS Safety Report 5868755-7 (Version None)
Quarter: 2008Q3

REPORT INFORMATION
  Report Type: 
  Country: None (occurrence: None)
  Receive Date: 20080826
  Receipt Date: 20080815
  Transmission Date: 20090109
  Serious: Yes (Hospitalization)
  Sender: FDA-Public Use
  Company Number: WAES 0808USA02724

PATIENT
  Age: 42 Year
  Sex: Male
  Weight: 63.05 kg

DRUGS (24)
  1. TAB RALTEGRAVIR POTASSIUM 400 MG [Suspect]
     Indication: HIV INFECTION
     Dosage: 400 MG/BID/PO
     Route: 048
     Dates: start: 20060531
  2. TAB 0518-BLINDED THERAPY UNK [Suspect]
     Indication: HIV INFECTION
     Dosage: UNK/BID/PO
     Route: 048
     Dates: start: 20050718, end: 20060531
  3. CAP SAQUINAVIR MESYLATE 200 MH [Suspect]
     Indication: HIV INFECTION
     Dosage: 200 X 5 MG/BID/PO
     Route: 048
     Dates: start: 20050718, end: 20060716
  4. CAP RITONAVIR 100 MG [Suspect]
     Indication: HIV INFECTION
     Dosage: 100 MG/BID/PO, 100 MG/DAILY/PO, 100 MG/BID/PO
     Route: 048
     Dates: start: 20050718, end: 20060616
  5. CAP RITONAVIR 100 MG [Suspect]
     Indication: HIV INFECTION
     Dosage: 100 MG/BID/PO, 100 MG/DAILY/PO, 100 MG/BID/PO
     Route: 048
     Dates: start: 20060617, end: 20070214
  6. CAP RITONAVIR 100 MG [Suspect]
     Indication: HIV INFECTION
     Dosage: 100 MG/BID/PO, 100 MG/DAILY/PO, 100 MG/BID/PO
     Route: 048
     Dates: start: 20070215
  7. TAB LAMIVUDINE (+) ZIDOVUDINE UNK [Suspect]
     Indication: HIV INFECTION
     Dosage: 1 TAB/BID/PO
     Route: 048
     Dates: start: 20050718, end: 20080219
  8. TENOFOVIR DISOPROXIL FUMARATE [Suspect]
     Indication: HIV INFECTION
     Dosage: 300 MG/DAILY/PO
     Route: 048
     Dates: start: 20050719, end: 20080219
  9. ATAZANAVIR SULFATE [Suspect]
     Indication: HIV INFECTION
     Dosage: 150 MG/BID/PO, 200 MG/BID/PO
     Route: 048
     Dates: start: 20050618, end: 20060616
  10. ATAZANAVIR SULFATE [Suspect]
     Indication: HIV INFECTION
     Dosage: 150 MG/BID/PO, 200 MG/BID/PO
     Route: 048
     Dates: start: 20060617, end: 20060716
  11. TAB DARUNAVIR 300 MG [Suspect]
     Indication: HIV INFECTION
     Dosage: 300 X2 MG/BID/PO
     Route: 048
     Dates: start: 20060717
  12. TAB EMTRICITABINE (+) TENOFOVIR DISOPROXIL FUMARATE 300 MG [Suspect]
     Indication: HIV INFECTION
     Dosage: 300 MG/DAILY/PO
     Route: 048
     Dates: start: 20080220
  13. ALBUTEROL [Concomitant]
  14. FLUTICASONE PROPIONATE (+) SALME [Concomitant]
  15. IMIQUIMOD [Concomitant]
  16. KETOCONAZOLE [Concomitant]
  17. LISINOPRIL [Concomitant]
  18. LOPERAMIDE HYDROCHLORIDE [Concomitant]
  19. MOMETASONE FUROATE [Concomitant]
  20. NAPROXEN [Concomitant]
  21. SILDENAFIL CITRATE [Concomitant]
  22. SULFAMETHOXAZOLE AND TRIMETHOPRIM [Concomitant]
  23. TESTOSTERONE [Concomitant]
  24. ZOLPIDEM TARTRATE [Concomitant]

REACTIONS (2)
  - PAIN [None]
  - PYREXIA [None]
